FAERS Safety Report 26205500 (Version 1)
Quarter: 2025Q4

REPORT INFORMATION
  Report Type: Spontaneous
  Country: CN (occurrence: CN)
  Receive Date: 20251228
  Receipt Date: 20251228
  Transmission Date: 20260118
  Serious: Yes (Other)
  Sender: ABBVIE
  Company Number: CN-PFIZER INC-PV202500148617

PATIENT
  Age: 63 Year
  Sex: Male
  Weight: 61 kg

DRUGS (3)
  1. AVIBACTAM SODIUM\CEFTAZIDIME [Suspect]
     Active Substance: AVIBACTAM SODIUM\CEFTAZIDIME
     Indication: Anti-infective therapy
     Dosage: 2.5 G, 3X/DAY,?AVIBACTAM SODIUM- 0.5G, ?CEFTAZIDIME PENTAHYDRATE- 2G
     Route: 041
     Dates: start: 20251017, end: 20251021
  2. AZTREONAM [Concomitant]
     Active Substance: AZTREONAM
     Indication: Anti-infective therapy
     Dates: start: 20251017, end: 20251021
  3. CILASTATIN SODIUM\IMIPENEM [Suspect]
     Active Substance: CILASTATIN SODIUM\IMIPENEM
     Indication: Anti-infective therapy
     Dosage: 1 DF, 3X/DAY
     Route: 041
     Dates: start: 20251010, end: 20251017

REACTIONS (2)
  - Superinfection fungal [Recovering/Resolving]
  - Dysbiosis [Recovering/Resolving]

NARRATIVE: CASE EVENT DATE: 20251021
